FAERS Safety Report 16476049 (Version 1)
Quarter: 2019Q2

REPORT INFORMATION
  Report Type: Spontaneous
  Country: KW (occurrence: KW)
  Receive Date: 20190625
  Receipt Date: 20190625
  Transmission Date: 20190711
  Serious: Yes (Death, Other)
  Sender: FDA-Public Use
  Company Number: KW-BIOMARINAP-KW-2019-124336

PATIENT
  Age: 16 Year
  Sex: Male
  Weight: 33 kg

DRUGS (1)
  1. ALDURAZYME [Suspect]
     Active Substance: LARONIDASE
     Indication: MUCOPOLYSACCHARIDOSIS I
     Dosage: 6 DOSAGE FORM, QW
     Route: 050
     Dates: start: 2008

REACTIONS (4)
  - Upper airway obstruction [Unknown]
  - Apnoea [Unknown]
  - Respiratory complication associated with device [Fatal]
  - Disease progression [Unknown]

NARRATIVE: CASE EVENT DATE: 20190501
